FAERS Safety Report 25112008 (Version 1)
Quarter: 2025Q1

REPORT INFORMATION
  Report Type: Spontaneous
  Country: US (occurrence: None)
  Receive Date: 20250321
  Receipt Date: 20250321
  Transmission Date: 20250409
  Serious: No
  Sender: FDA-CTU
  Company Number: None

PATIENT
  Age: 37 Year
  Sex: Female
  Weight: 60.75 kg

DRUGS (1)
  1. CUVITRU [Suspect]
     Active Substance: HUMAN IMMUNOGLOBULIN G
     Indication: Primary immunodeficiency syndrome
     Route: 050
     Dates: start: 20250319, end: 20250319

REACTIONS (5)
  - Migraine [None]
  - Cervical radiculopathy [None]
  - Infusion site erythema [None]
  - Infusion site pruritus [None]
  - Infusion site swelling [None]

NARRATIVE: CASE EVENT DATE: 20250320
